FAERS Safety Report 7141231-X (Version None)
Quarter: 2010Q4

REPORT INFORMATION
  Report Type: 
  Country: None (occurrence: None)
  Receive Date: 20101207
  Receipt Date: 20101130
  Transmission Date: 20110411
  Serious: No
  Sender: FDA-Public Use
  Company Number: US-JNJFOC-20101201194

PATIENT
  Sex: Female
  Weight: 104.33 kg

DRUGS (4)
  1. FENTANYL-100 [Suspect]
     Indication: COMPLEX REGIONAL PAIN SYNDROME
     Route: 062
  2. FENTANYL-100 [Suspect]
     Indication: INTERVERTEBRAL DISC DEGENERATION
     Route: 062
  3. LISINOPRIL [Concomitant]
     Indication: HYPERTENSION
     Route: 048
  4. FLEXERIL [Concomitant]
     Indication: MUSCLE SPASMS
     Route: 048

REACTIONS (1)
  - DRUG DOSE OMISSION [None]
